FAERS Safety Report 4852687-7 (Version None)
Quarter: 2005Q4

REPORT INFORMATION
  Report Type: 
  Country: None (occurrence: None)
  Receive Date: 20051125
  Receipt Date: 20050627
  Transmission Date: 20060501
  Serious: Yes (Other)
  Sender: FDA-Public Use
  Company Number: 2005090232

PATIENT
  Age: 42 Year
  Sex: Male

DRUGS (4)
  1. TIKOSYN [Suspect]
     Indication: ATRIAL TACHYCARDIA
     Dosage: (TWICE DAILY), ORAL
     Route: 048
     Dates: start: 20050527
  2. COREG [Concomitant]
  3. LANOXIN [Concomitant]
  4. ANTI-DIABETICS [Concomitant]

REACTIONS (1)
  - URTICARIA [None]
